FAERS Safety Report 21294670 (Version 2)
Quarter: 2022Q3

REPORT INFORMATION
  Report Type: Other
  Country: JP (occurrence: JP)
  Receive Date: 20220905
  Receipt Date: 20220927
  Transmission Date: 20221026
  Serious: Yes (Hospitalization)
  Sender: FDA-Public Use
  Company Number: JP-CHUGAI-2022011380

PATIENT
  Age: 70 Year
  Sex: Male
  Weight: 55.1 kg

DRUGS (18)
  1. ATEZOLIZUMAB [Suspect]
     Active Substance: ATEZOLIZUMAB
     Indication: Lung adenocarcinoma
     Dosage: 1200 MILLIGRAM
     Route: 041
     Dates: start: 20210312
  2. ATEZOLIZUMAB [Suspect]
     Active Substance: ATEZOLIZUMAB
     Dosage: 1200 MILLIGRAM, ONCE/3WEEKS
     Route: 041
     Dates: start: 20210423, end: 20210514
  3. ATEZOLIZUMAB [Suspect]
     Active Substance: ATEZOLIZUMAB
     Dosage: 1200 MILLIGRAM, ONCE/3WEEKS
     Route: 041
     Dates: start: 20210608, end: 20211125
  4. ATEZOLIZUMAB [Suspect]
     Active Substance: ATEZOLIZUMAB
     Dosage: 1200 MILLIGRAM, ONCE/3WEEKS
     Route: 041
     Dates: start: 20211221
  5. ATEZOLIZUMAB [Suspect]
     Active Substance: ATEZOLIZUMAB
     Route: 041
     Dates: start: 20220405, end: 20220628
  6. BEVACIZUMAB [Suspect]
     Active Substance: BEVACIZUMAB
     Indication: Lung adenocarcinoma
     Dosage: 855 MILLIGRAM
     Route: 041
     Dates: start: 20210312
  7. BEVACIZUMAB [Suspect]
     Active Substance: BEVACIZUMAB
     Dosage: 855 MILLIGRAM, ONCE/3WEEKS
     Route: 041
     Dates: start: 20210423, end: 20210514
  8. BEVACIZUMAB [Suspect]
     Active Substance: BEVACIZUMAB
     Dosage: 768 MILLIGRAM, ONCE/3WEEKS
     Route: 041
     Dates: start: 20210608, end: 20211125
  9. BEVACIZUMAB [Suspect]
     Active Substance: BEVACIZUMAB
     Dosage: 768 MILLIGRAM, ONCE/3WEEKS
     Route: 041
     Dates: start: 20211221
  10. BEVACIZUMAB [Suspect]
     Active Substance: BEVACIZUMAB
     Route: 041
     Dates: start: 20220405, end: 20220628
  11. CARBOPLATIN [Suspect]
     Active Substance: CARBOPLATIN
     Indication: Lung adenocarcinoma
     Dosage: 409 MILLIGRAM
     Route: 041
     Dates: start: 20210312
  12. CARBOPLATIN [Suspect]
     Active Substance: CARBOPLATIN
     Dosage: 418 MILLIGRAM, ONCE/3WEEKS
     Route: 041
     Dates: start: 20210423, end: 20210514
  13. PACLITAXEL [Suspect]
     Active Substance: PACLITAXEL
     Indication: Lung adenocarcinoma
     Dosage: 318 MILLIGRAM
     Route: 041
     Dates: start: 20210312
  14. PACLITAXEL [Suspect]
     Active Substance: PACLITAXEL
     Dosage: 239 MILLIGRAM, ONCE/3WEEKS
     Route: 041
     Dates: start: 20210423, end: 20210514
  15. CARBOPLATIN [Concomitant]
     Active Substance: CARBOPLATIN
     Indication: Lung adenocarcinoma
     Dosage: 409 MILLIGRAM
     Route: 041
     Dates: start: 20210312
  16. CARBOPLATIN [Concomitant]
     Active Substance: CARBOPLATIN
     Dosage: 418 MILLIGRAM, ONCE/3WEEKS
     Route: 041
     Dates: start: 20210423, end: 20210514
  17. PACLITAXEL [Concomitant]
     Active Substance: PACLITAXEL
     Indication: Lung adenocarcinoma
     Dosage: 318 MILLIGRAM
     Route: 041
     Dates: start: 20210312
  18. PACLITAXEL [Concomitant]
     Active Substance: PACLITAXEL
     Dosage: 239 MILLIGRAM, ONCE/3WEEKS
     Route: 041
     Dates: start: 20210423, end: 20210514

REACTIONS (9)
  - Platelet count decreased [Recovered/Resolved]
  - Neuropathy peripheral [Recovering/Resolving]
  - Neutrophil count decreased [Recovering/Resolving]
  - Platelet count decreased [Recovering/Resolving]
  - White blood cell count decreased [Recovering/Resolving]
  - Malaise [Recovering/Resolving]
  - Constipation [Recovering/Resolving]
  - Dermatitis acneiform [Recovering/Resolving]
  - Hiccups [Recovered/Resolved]

NARRATIVE: CASE EVENT DATE: 20210314
